FAERS Safety Report 21261178 (Version 1)
Quarter: 2022Q3

REPORT INFORMATION
  Report Type: Spontaneous
  Country: US (occurrence: US)
  Receive Date: 20220826
  Receipt Date: 20220826
  Transmission Date: 20221027
  Serious: No
  Sender: FDA-Public Use
  Company Number: US-BoehringerIngelheim-2022-BI-189242

PATIENT
  Age: 47 Year
  Sex: Male

DRUGS (1)
  1. SYNJARDY [Suspect]
     Active Substance: EMPAGLIFLOZIN\METFORMIN HYDROCHLORIDE
     Indication: Product used for unknown indication
     Dosage: XR ORAL TABLET EXTENDED RELEASE 24 HOUR 12.5-1000 MG
     Route: 048

REACTIONS (1)
  - Extra dose administered [Recovered/Resolved]
